FAERS Safety Report 4744721-X (Version None)
Quarter: 2005Q3

REPORT INFORMATION
  Report Type: 
  Country: None (occurrence: None)
  Receive Date: 20050815
  Receipt Date: 20050811
  Transmission Date: 20060218
  Serious: Yes (Life-Threatening)
  Sender: FDA-Public Use
  Company Number: 2005CG01373

PATIENT
  Age: 70 Year
  Sex: Female

DRUGS (3)
  1. NAROPIN [Suspect]
     Indication: LOCAL ANAESTHESIA
     Route: 053
     Dates: start: 20050809, end: 20050809
  2. ATARAX [Concomitant]
     Indication: PREMEDICATION
     Route: 048
     Dates: start: 20050809, end: 20050809
  3. BETADINE [Concomitant]
     Route: 003
     Dates: start: 20050809, end: 20050809

REACTIONS (3)
  - ANAPHYLACTIC SHOCK [None]
  - CARDIAC ARREST [None]
  - HYPERTENSIVE CRISIS [None]
